FAERS Safety Report 10286267 (Version 3)
Quarter: 2015Q1

REPORT INFORMATION
  Report Type: Spontaneous
  Country: FR (occurrence: FR)
  Receive Date: 20140709
  Receipt Date: 20150205
  Transmission Date: 20150720
  Serious: Yes (Hospitalization)
  Sender: FDA-Public Use
  Company Number: FR-JNJFOC-20140618308

PATIENT
  Age: 38 Year
  Sex: Male

DRUGS (15)
  1. HALDOL [Suspect]
     Active Substance: HALOPERIDOL
     Indication: DELIRIUM TREMENS
     Route: 048
     Dates: start: 20140512, end: 20140512
  2. LOXAPAC [Suspect]
     Active Substance: LOXAPINE SUCCINATE
     Indication: AGITATION
     Route: 030
     Dates: start: 20140519, end: 20140519
  3. ISENTRESS [Concomitant]
     Active Substance: RALTEGRAVIR POTASSIUM
     Route: 065
  4. LOXAPAC [Suspect]
     Active Substance: LOXAPINE SUCCINATE
     Indication: AGITATION
     Route: 030
     Dates: start: 20140518, end: 20140518
  5. HALDOL [Suspect]
     Active Substance: HALOPERIDOL
     Indication: ALCOHOL WITHDRAWAL SYNDROME
     Route: 048
     Dates: start: 20140512, end: 20140512
  6. LOXAPAC [Suspect]
     Active Substance: LOXAPINE SUCCINATE
     Indication: PERSECUTORY DELUSION
     Route: 048
     Dates: start: 20140516, end: 20140524
  7. LOXAPAC [Suspect]
     Active Substance: LOXAPINE SUCCINATE
     Indication: PERSECUTORY DELUSION
     Route: 030
     Dates: start: 20140518, end: 20140518
  8. TRUVADA [Concomitant]
     Active Substance: EMTRICITABINE\TENOFOVIR DISOPROXIL FUMARATE
     Route: 065
  9. HALDOL [Suspect]
     Active Substance: HALOPERIDOL
     Indication: ALCOHOL WITHDRAWAL SYNDROME
     Dosage: 20 GTT EVERY 6 HOURS
     Route: 048
     Dates: start: 20140511, end: 20140511
  10. HALDOL [Suspect]
     Active Substance: HALOPERIDOL
     Indication: DELIRIUM TREMENS
     Dosage: 20 GTT EVERY 6 HOURS
     Route: 048
     Dates: start: 20140511, end: 20140511
  11. LOXAPAC [Suspect]
     Active Substance: LOXAPINE SUCCINATE
     Indication: PERSECUTORY DELUSION
     Route: 030
     Dates: start: 20140519, end: 20140519
  12. BECLOFORTE [Concomitant]
     Dosage: STOPPED 2 WEEKS BEFORE HOSPITALIZATION
     Route: 065
  13. SERESTA [Concomitant]
     Active Substance: OXAZEPAM
     Indication: ALCOHOL WITHDRAWAL SYNDROME
     Route: 065
  14. LOXAPAC [Suspect]
     Active Substance: LOXAPINE SUCCINATE
     Indication: AGITATION
     Route: 048
     Dates: start: 20140516, end: 20140524
  15. SERESTA [Concomitant]
     Active Substance: OXAZEPAM
     Indication: DELIRIUM TREMENS
     Route: 065

REACTIONS (1)
  - Diabetes mellitus [Recovered/Resolved with Sequelae]

NARRATIVE: CASE EVENT DATE: 20140521
